FAERS Safety Report 18206944 (Version 4)
Quarter: 2022Q1

REPORT INFORMATION
  Report Type: Spontaneous
  Country: JP (occurrence: JP)
  Receive Date: 20200828
  Receipt Date: 20220225
  Transmission Date: 20220423
  Serious: Yes (Other)
  Sender: FDA-Public Use
  Company Number: None

PATIENT
  Age: 86 Year
  Sex: Male

DRUGS (1)
  1. BEOVU [Suspect]
     Active Substance: BROLUCIZUMAB-DBLL
     Indication: Neovascular age-related macular degeneration
     Dosage: 6 MG
     Route: 031
     Dates: start: 20200612, end: 20200612

REACTIONS (10)
  - Eye inflammation [Recovered/Resolved]
  - Anterior chamber inflammation [Unknown]
  - Keratic precipitates [Unknown]
  - Vitreous opacities [Unknown]
  - Retinal vasculitis [Recovered/Resolved with Sequelae]
  - Retinal artery occlusion [Recovered/Resolved with Sequelae]
  - Retinal oedema [Unknown]
  - Sudden visual loss [Not Recovered/Not Resolved]
  - Retinal perivascular sheathing [Recovering/Resolving]
  - Retinal exudates [Unknown]

NARRATIVE: CASE EVENT DATE: 20200628
